FAERS Safety Report 8671412 (Version 2)
Quarter: 2013Q3

REPORT INFORMATION
  Report Type: Report from Study
  Country: DE (occurrence: DE)
  Receive Date: 20120718
  Receipt Date: 20130731
  Transmission Date: 20140515
  Serious: Yes (Hospitalization)
  Sender: FDA-Public Use
  Company Number: DE-GLAXOSMITHKLINE-B0801665B

PATIENT
  Age: 59 Year
  Sex: Female
  Weight: 59 kg

DRUGS (14)
  1. LAPATINIB [Suspect]
     Indication: BREAST CANCER
     Dosage: 750MG PER DAY
     Route: 048
     Dates: start: 20120419
  2. PACLITAXEL [Suspect]
     Indication: BREAST CANCER
     Dosage: 137MG WEEKLY
     Route: 042
     Dates: start: 20120419
  3. MYOCET [Suspect]
     Indication: BREAST CANCER
     Dosage: 34MG WEEKLY
     Route: 042
     Dates: start: 20120419
  4. TRASTUZUMAB [Suspect]
     Indication: BREAST CANCER
     Dosage: 384MG EVERY 3 WEEKS
     Route: 042
     Dates: start: 20120419
  5. NOVALGIN [Concomitant]
     Dates: start: 1993
  6. JUTABIS [Concomitant]
     Dosage: 5MG PER DAY
     Dates: start: 2006
  7. PANTOPRAZOL [Concomitant]
     Dosage: 20MG PER DAY
     Dates: start: 1982
  8. MAALOXAN [Concomitant]
     Dosage: 2TAB PER DAY
     Dates: start: 20120427
  9. SELENIUM [Concomitant]
     Dates: start: 20120430
  10. OPIUM DROPS [Concomitant]
     Dates: start: 20120513, end: 20120806
  11. MILK THISTLE [Concomitant]
     Dates: start: 20120430
  12. BETAISODONA [Concomitant]
     Dates: start: 20120528, end: 20120801
  13. ONDANSETRON [Concomitant]
     Dates: start: 20120509, end: 20120831
  14. SALVIATHYMOL [Concomitant]
     Dates: start: 20120621, end: 20120831

REACTIONS (1)
  - Paraesthesia oral [Recovered/Resolved]
